FAERS Safety Report 23419637 (Version 1)
Quarter: 2024Q1

REPORT INFORMATION
  Report Type: Report from Study
  Country: AR (occurrence: AR)
  Receive Date: 20240118
  Receipt Date: 20240118
  Transmission Date: 20240409
  Serious: Yes (Hospitalization, Other)
  Sender: FDA-Public Use
  Company Number: AR-JNJFOC-20240137969

PATIENT
  Age: 42 Year
  Sex: Female

DRUGS (1)
  1. SIMPONI [Suspect]
     Active Substance: GOLIMUMAB
     Indication: Rheumatoid arthritis
     Route: 041
     Dates: start: 20191028

REACTIONS (8)
  - Syncope [Recovering/Resolving]
  - Alopecia [Recovering/Resolving]
  - Stress [Recovering/Resolving]
  - Enterostomy [Recovering/Resolving]
  - Malnutrition [Recovering/Resolving]
  - Tuberculosis [Recovering/Resolving]
  - Anaemia [Recovering/Resolving]
  - Rheumatoid arthritis [Unknown]

NARRATIVE: CASE EVENT DATE: 20191110
